FAERS Safety Report 8277941-0 (Version None)
Quarter: 2012Q2

REPORT INFORMATION
  Report Type: 
  Country: None (occurrence: None)
  Receive Date: 20120412
  Receipt Date: 20120406
  Transmission Date: 20120825
  Serious: Yes (Other)
  Sender: FDA-Public Use
  Company Number: IT-BRISTOL-MYERS SQUIBB COMPANY-16508178

PATIENT
  Age: 38 Year
  Sex: Female

DRUGS (1)
  1. ABILIFY [Suspect]
     Dosage: 1 TABS
     Route: 065

REACTIONS (2)
  - PREGNANCY [None]
  - ABORTION SPONTANEOUS [None]
